FAERS Safety Report 25442717 (Version 2)
Quarter: 2025Q3

REPORT INFORMATION
  Report Type: Spontaneous
  Country: US (occurrence: US)
  Receive Date: 20250617
  Receipt Date: 20250918
  Transmission Date: 20251020
  Serious: Yes (Hospitalization, Other)
  Sender: JOHNSON AND JOHNSON
  Company Number: US-JNJFOC-20250614224

PATIENT
  Age: 82 Year
  Sex: Female

DRUGS (1)
  1. RYBREVANT [Suspect]
     Active Substance: AMIVANTAMAB-VMJW
     Indication: Neoplasm malignant
     Dosage: VARYING DOES OF 350 MG, 700 MG AND 1050 MG
     Route: 065
     Dates: start: 20240626

REACTIONS (4)
  - Cellulitis [Not Recovered/Not Resolved]
  - Staphylococcal infection [Unknown]
  - Alopecia [Unknown]
  - Product dose omission issue [Unknown]

NARRATIVE: CASE EVENT DATE: 20240801
